FAERS Safety Report 4773937-1 (Version None)
Quarter: 2005Q3

REPORT INFORMATION
  Report Type: 
  Country: None (occurrence: None)
  Receive Date: 20050920
  Receipt Date: 20050825
  Transmission Date: 20060218
  Serious: Yes (Hospitalization)
  Sender: FDA-Public Use
  Company Number: PHBS2005JP12546

PATIENT
  Age: 50 Year
  Sex: Male
  Weight: 63 kg

DRUGS (7)
  1. DIOVAN [Suspect]
     Dosage: 40 MG, ON AND OFF
     Route: 048
     Dates: start: 20021211, end: 20040524
  2. DIOVAN [Suspect]
     Dosage: 40 MG, QD
     Route: 048
     Dates: start: 20041012, end: 20050201
  3. DIOVAN [Suspect]
     Dosage: 40 MG, QD
     Route: 048
     Dates: start: 20050428, end: 20050731
  4. ALLOPURINOL [Suspect]
     Indication: HYPERURICAEMIA
     Dosage: UNK, UNK
     Route: 048
     Dates: end: 20050731
  5. ASPIRIN [Suspect]
     Indication: CEREBRAL INFARCTION
     Dosage: 100 MG, QD
     Route: 048
     Dates: end: 20050731
  6. ASPIRIN [Suspect]
     Dosage: 100 MG, QD
     Dates: start: 20050804
  7. PODONIN S [Concomitant]
     Indication: GASTRITIS
     Route: 048
     Dates: end: 20050731

REACTIONS (9)
  - ALANINE AMINOTRANSFERASE INCREASED [None]
  - ASPARTATE AMINOTRANSFERASE INCREASED [None]
  - BLOOD BILIRUBIN INCREASED [None]
  - DYSPEPSIA [None]
  - GAMMA-GLUTAMYLTRANSFERASE INCREASED [None]
  - HEPATIC FUNCTION ABNORMAL [None]
  - MALAISE [None]
  - PYREXIA [None]
  - STOMACH DISCOMFORT [None]
